FAERS Safety Report 8480551-3 (Version None)
Quarter: 2012Q3

REPORT INFORMATION
  Report Type: 
  Country: None (occurrence: None)
  Receive Date: 20120702
  Receipt Date: 20120626
  Transmission Date: 20120928
  Serious: No
  Sender: FDA-Public Use
  Company Number: US-BIOGENIDEC-2012BI022616

PATIENT
  Age: 57 Year
  Sex: Female

DRUGS (1)
  1. TYSABRI [Suspect]
     Indication: MULTIPLE SCLEROSIS
     Route: 042

REACTIONS (6)
  - APHONIA [None]
  - RHINORRHOEA [None]
  - DYSPHONIA [None]
  - NASOPHARYNGITIS [None]
  - PULMONARY CONGESTION [None]
  - COUGH [None]
